FAERS Safety Report 4572555-8 (Version None)
Quarter: 2005Q1

REPORT INFORMATION
  Report Type: 
  Country: None (occurrence: None)
  Receive Date: 20050208
  Receipt Date: 20050127
  Transmission Date: 20050727
  Serious: Yes (Hospitalization, Other)
  Sender: FDA-Public Use
  Company Number: US-JNJFOC-20050200108

PATIENT
  Sex: Female

DRUGS (7)
  1. INFLIXIMAB [Suspect]
     Indication: RHEUMATOID ARTHRITIS
     Route: 042
  2. ASPIRIN [Concomitant]
  3. BUMETANIDE [Concomitant]
  4. CALTRATE [Concomitant]
  5. KLOR-CON [Concomitant]
  6. LISINOPRIL [Concomitant]
  7. ISOSORBIDE [Concomitant]

REACTIONS (1)
  - LYMPHOMA [None]
